FAERS Safety Report 7556490-9 (Version None)
Quarter: 2011Q2

REPORT INFORMATION
  Report Type: 
  Country: None (occurrence: None)
  Receive Date: 20110610
  Receipt Date: 20110526
  Transmission Date: 20111010
  Serious: Yes (Hospitalization)
  Sender: FDA-Public Use
  Company Number: LTI2010A00252

PATIENT
  Age: 73 Year
  Sex: Female

DRUGS (1)
  1. ACTOS [Suspect]
     Indication: TYPE 2 DIABETES MELLITUS
     Dosage: 45 MG (45 MG, 1 D)
     Route: 048
     Dates: start: 20040101, end: 20101127

REACTIONS (3)
  - BLADDER CANCER STAGE III [None]
  - HAEMATURIA [None]
  - RENAL CANCER [None]
